FAERS Safety Report 5805152-4 (Version None)
Quarter: 2008Q3

REPORT INFORMATION
  Report Type: 
  Country: None (occurrence: None)
  Receive Date: 20080707
  Receipt Date: 20080619
  Transmission Date: 20090109
  Serious: Yes (Death, Hospitalization)
  Sender: FDA-Public Use
  Company Number: 2008US001622

PATIENT
  Sex: Male

DRUGS (1)
  1. AMBISOME [Suspect]
     Indication: HIV INFECTION

REACTIONS (10)
  - AIDS ENCEPHALOPATHY [None]
  - APNOEA [None]
  - CARDIAC ARREST [None]
  - GENERAL PHYSICAL HEALTH DETERIORATION [None]
  - HEPATIC ENCEPHALOPATHY [None]
  - LOBAR PNEUMONIA [None]
  - MENINGITIS [None]
  - PYREXIA [None]
  - RESPIRATORY FAILURE [None]
  - SEPSIS SYNDROME [None]
